FAERS Safety Report 4706810-5 (Version None)
Quarter: 2005Q3

REPORT INFORMATION
  Report Type: 
  Country: None (occurrence: None)
  Receive Date: 20050705
  Receipt Date: 20050617
  Transmission Date: 20060218
  Serious: Yes (Hospitalization, Other)
  Sender: FDA-Public Use
  Company Number: 2003113752

PATIENT
  Age: 52 Year
  Sex: Female

DRUGS (21)
  1. LIPITOR [Suspect]
     Indication: BLOOD CHOLESTEROL INCREASED
     Dates: start: 20011001, end: 20020201
  2. TRICOR [Suspect]
     Indication: HYPERLIPIDAEMIA
     Dosage: 160 MG (160 MG, 1 IN 1 D)
     Dates: start: 20040412, end: 20050301
  3. MAXALT [Concomitant]
  4. ZIAC [Concomitant]
  5. CLARITIN [Concomitant]
  6. ACETYLSALICYLIC ACID SRT [Concomitant]
  7. VAGIFEM [Concomitant]
  8. PREVIDENT (SODIUM FLUORIDE) [Concomitant]
  9. BUSPIRONE [Concomitant]
  10. VICOPROFEN [Concomitant]
  11. AMOXICILLIN [Concomitant]
  12. ZETIA [Concomitant]
  13. ALLEGRA-D [Concomitant]
  14. NITROQUICK (GLYCERYL TRINITRATE) [Concomitant]
  15. LISINOPRIL [Concomitant]
  16. TOPROL-XL [Concomitant]
  17. PLAVIX [Concomitant]
  18. CRESTOR [Concomitant]
  19. RANITIDINE HCL [Concomitant]
  20. METOCLOPRAMIDE [Concomitant]
  21. ACETAMINOPHEN W/ CODEINE [Concomitant]

REACTIONS (53)
  - ACUTE MYOCARDIAL INFARCTION [None]
  - ANGINA PECTORIS [None]
  - ANXIETY [None]
  - ARTHRALGIA [None]
  - BACK PAIN [None]
  - BLINDNESS UNILATERAL [None]
  - BLOOD CHOLESTEROL INCREASED [None]
  - BLOOD PRESSURE INCREASED [None]
  - CARDIAC MURMUR [None]
  - CHEST PAIN [None]
  - CORONARY ARTERY DISEASE [None]
  - DISCOMFORT [None]
  - ECCHYMOSIS [None]
  - EMOTIONAL DISTRESS [None]
  - ENDOMETRIAL HYPERTROPHY [None]
  - EYE HAEMORRHAGE [None]
  - EYE INFLAMMATION [None]
  - EYE SWELLING [None]
  - FATIGUE [None]
  - HYPERSENSITIVITY [None]
  - IMMUNE SYSTEM DISORDER [None]
  - INJURY [None]
  - LOW DENSITY LIPOPROTEIN INCREASED [None]
  - MICROANGIOPATHY [None]
  - MUSCLE STRAIN [None]
  - MUSCULOSKELETAL STIFFNESS [None]
  - MYALGIA [None]
  - OCULAR VASCULAR DISORDER [None]
  - OEDEMA PERIPHERAL [None]
  - OPTIC ATROPHY [None]
  - OPTIC ISCHAEMIC NEUROPATHY [None]
  - OPTIC NERVE DISORDER [None]
  - OPTIC NERVE INJURY [None]
  - OPTIC NEUROPATHY [None]
  - OSTEOPENIA [None]
  - PAIN [None]
  - PAIN IN EXTREMITY [None]
  - PAPILLOEDEMA [None]
  - POST PROCEDURAL COMPLICATION [None]
  - POSTMENOPAUSAL HAEMORRHAGE [None]
  - PRURITUS [None]
  - PYREXIA [None]
  - SCAR [None]
  - SEASONAL ALLERGY [None]
  - SINUS BRADYCARDIA [None]
  - SPLINTER HAEMORRHAGES [None]
  - TENDON DISORDER [None]
  - UTERINE POLYP [None]
  - VASCULITIS [None]
  - VENTRICULAR HYPOKINESIA [None]
  - VENTRICULAR TACHYCARDIA [None]
  - VISION BLURRED [None]
  - VISUAL FIELD DEFECT [None]
